FAERS Safety Report 5950719-6 (Version None)
Quarter: 2008Q4

REPORT INFORMATION
  Report Type: 
  Country: None (occurrence: None)
  Receive Date: 20081022
  Receipt Date: 20080731
  Transmission Date: 20090506
  Serious: No
  Sender: FDA-Public Use
  Company Number: ALL1-2008-02162

PATIENT
  Age: 8 Year
  Sex: Female
  Weight: 22.7 kg

DRUGS (4)
  1. VYVANSE [Suspect]
     Indication: ATTENTION DEFICIT/HYPERACTIVITY DISORDER
     Dosage: 30 MG, 1X/DAY:QD,ORAL
     Route: 048
     Dates: start: 20080730
  2. ZOLOFT [Concomitant]
  3. CLONIDINE [Concomitant]
  4. CEPHALEXIN/00145501/ (CEFALEXIN) [Concomitant]

REACTIONS (2)
  - FLUSHING [None]
  - HYPERSOMNIA [None]
